FAERS Safety Report 20345996 (Version 1)
Quarter: 2022Q1

REPORT INFORMATION
  Report Type: Spontaneous
  Country: CN (occurrence: CN)
  Receive Date: 20220118
  Receipt Date: 20220118
  Transmission Date: 20220423
  Serious: Yes (Other)
  Sender: FDA-Public Use
  Company Number: CN-PFIZER INC-202200020714

PATIENT
  Age: 43 Year
  Sex: Female
  Weight: 50 kg

DRUGS (4)
  1. MISOPROSTOL [Suspect]
     Active Substance: MISOPROSTOL
     Indication: Induced labour
     Dosage: 1 DF, 1X/DAY
     Route: 067
     Dates: start: 20211224, end: 20211225
  2. MISOPROSTOL [Suspect]
     Active Substance: MISOPROSTOL
     Dosage: 2 DF, 1X/DAY
     Route: 067
     Dates: start: 20211224, end: 20211225
  3. MISOPROSTOL [Suspect]
     Active Substance: MISOPROSTOL
     Dosage: 2 DF, 1X/DAY
     Route: 067
     Dates: start: 20211229, end: 20211229
  4. MIFEPRISTONE [Concomitant]
     Active Substance: MIFEPRISTONE
     Indication: Induced labour
     Dosage: 2 DF, 2X/DAY
     Route: 048
     Dates: start: 20211221, end: 20211223

REACTIONS (4)
  - Pyrexia [Recovered/Resolved]
  - Temperature intolerance [Recovered/Resolved]
  - Off label use [Unknown]
  - Off label use [Unknown]

NARRATIVE: CASE EVENT DATE: 20211224
